FAERS Safety Report 23177454 (Version 1)
Quarter: 2023Q4

REPORT INFORMATION
  Report Type: Spontaneous
  Country: DE (occurrence: DE)
  Receive Date: 20231113
  Receipt Date: 20231113
  Transmission Date: 20240109
  Serious: Yes (Hospitalization)
  Sender: FDA-Public Use
  Company Number: DE-ABBVIE-5465778

PATIENT
  Age: 61 Year

DRUGS (2)
  1. ENTYVIO [Suspect]
     Active Substance: VEDOLIZUMAB
     Indication: Inflammatory bowel disease
     Dosage: UNK
     Route: 065
  2. ADALIMUMAB [Suspect]
     Active Substance: ADALIMUMAB\ISOPROPYL ALCOHOL
     Indication: Inflammatory bowel disease
     Dosage: UNK
     Route: 058

REACTIONS (4)
  - Campylobacter colitis [Recovered/Resolved]
  - Osteomyelitis [Recovered/Resolved]
  - Viral upper respiratory tract infection [Recovered/Resolved]
  - Off label use [Unknown]
